FAERS Safety Report 21453813 (Version 2)
Quarter: 2022Q4

REPORT INFORMATION
  Report Type: Spontaneous
  Country: US (occurrence: US)
  Receive Date: 20221013
  Receipt Date: 20221014
  Transmission Date: 20230113
  Serious: No
  Sender: FDA-Public Use
  Company Number: US-PFIZER INC-202201225017

PATIENT
  Age: 57 Year
  Sex: Female

DRUGS (1)
  1. PREMARIN [Suspect]
     Active Substance: ESTROGENS, CONJUGATED
     Dosage: 0.5 MG EVERY DAY FOR TWO WEEKS AND THEN ONLY TWICE A WEEK

REACTIONS (4)
  - Vulvovaginal dryness [Unknown]
  - Mood swings [Unknown]
  - Hot flush [Unknown]
  - Intentional product misuse [Unknown]
